APPROVED DRUG PRODUCT: ATOVAQUONE
Active Ingredient: ATOVAQUONE
Strength: 750MG/5ML
Dosage Form/Route: SUSPENSION;ORAL
Application: A209105 | Product #001
Applicant: LUPIN LTD
Approved: Sep 11, 2018 | RLD: No | RS: No | Type: DISCN